FAERS Safety Report 15732916 (Version 7)
Quarter: 2022Q4

REPORT INFORMATION
  Report Type: Spontaneous
  Country: JP (occurrence: JP)
  Receive Date: 20181217
  Receipt Date: 20221201
  Transmission Date: 20230112
  Serious: Yes (Other)
  Sender: FDA-Public Use
  Company Number: JP-BRISTOL-MYERS SQUIBB COMPANY-BMS-2018-118580

PATIENT
  Age: 7 Decade
  Sex: Male

DRUGS (1)
  1. OPDIVO [Suspect]
     Active Substance: NIVOLUMAB
     Indication: Gastric cancer
     Dosage: 3 MILLIGRAM/KILOGRAM, Q2WK
     Route: 041

REACTIONS (5)
  - Cholecystitis acute [Recovering/Resolving]
  - Tumour haemorrhage [Unknown]
  - Hypothyroidism [Unknown]
  - Diarrhoea [Unknown]
  - Hepatic function abnormal [Unknown]
